FAERS Safety Report 6499757-8 (Version None)
Quarter: 2009Q4

REPORT INFORMATION
  Report Type: 
  Country: None (occurrence: None)
  Receive Date: 20091215
  Receipt Date: 20091119
  Transmission Date: 20100525
  Serious: No
  Sender: FDA-Public Use
  Company Number: US-BAYER-200917176BCC

PATIENT
  Age: 86 Year
  Sex: Female
  Weight: 54 kg

DRUGS (4)
  1. ALEVE [Suspect]
     Indication: ARTHRALGIA
     Dosage: TOTAL DAILY DOSE: 440 MG  UNIT DOSE: 220 MG
     Route: 048
     Dates: start: 20091113, end: 20091115
  2. DIVAN [Concomitant]
     Route: 065
  3. AMLODIPINE [Concomitant]
     Route: 065
  4. GLYBURIDE [Concomitant]
     Route: 065

REACTIONS (1)
  - ARTHRALGIA [None]
